FAERS Safety Report 4542175-X (Version None)
Quarter: 2004Q4

REPORT INFORMATION
  Report Type: 
  Country: None (occurrence: None)
  Receive Date: 20041227
  Receipt Date: 20041220
  Transmission Date: 20050328
  Serious: Yes (Death)
  Sender: FDA-Public Use
  Company Number: 163-20785-04110366

PATIENT
  Age: 69 Year
  Sex: Female

DRUGS (1)
  1. THALOMID [Suspect]
     Indication: MULTIPLE MYELOMA
     Dosage: 200 MG, QHS, ORAL
     Route: 048
     Dates: start: 20010401, end: 20041102

REACTIONS (3)
  - FALL [None]
  - LIMB INJURY [None]
  - RESPIRATORY FAILURE [None]
